FAERS Safety Report 8618867-X (Version None)
Quarter: 2012Q3

REPORT INFORMATION
  Report Type: 
  Country: None (occurrence: None)
  Receive Date: 20120824
  Receipt Date: 20120820
  Transmission Date: 20120928
  Serious: Yes (Other)
  Sender: FDA-Public Use
  Company Number: US-PFIZER INC-2012205179

PATIENT
  Age: 73 Year
  Sex: Female
  Weight: 81.633 kg

DRUGS (3)
  1. LIPITOR [Suspect]
     Indication: BLOOD CHOLESTEROL INCREASED
  2. NORVASC [Concomitant]
     Indication: HYPERTENSION
     Dosage: 5 MG, DAILY
  3. LIPITOR [Suspect]
     Indication: CARDIAC DISORDER
     Dosage: 80 MG, DAILY
     Route: 048

REACTIONS (1)
  - AGE-RELATED MACULAR DEGENERATION [None]
